FAERS Safety Report 16218855 (Version 1)
Quarter: 2019Q2

REPORT INFORMATION
  Report Type: Spontaneous
  Country: NL (occurrence: NL)
  Receive Date: 20190419
  Receipt Date: 20190419
  Transmission Date: 20190711
  Serious: Yes (Life-Threatening, Hospitalization)
  Sender: FDA-Public Use
  Company Number: NL-PFIZER INC-2019164880

PATIENT
  Age: 58 Year
  Sex: Male

DRUGS (3)
  1. VENLAFAXINE HCL [Suspect]
     Active Substance: VENLAFAXINE HYDROCHLORIDE
     Dosage: 75 MG, DAILY (WAS STARTED ON DAY 4)
  2. VENLAFAXINE HCL [Suspect]
     Active Substance: VENLAFAXINE HYDROCHLORIDE
     Indication: DEPRESSION
     Dosage: UNK
  3. BACLOFEN. [Suspect]
     Active Substance: BACLOFEN
     Dosage: UNK

REACTIONS (4)
  - Electrocardiogram QRS complex prolonged [Unknown]
  - Bradypnoea [Recovering/Resolving]
  - Toxicity to various agents [Recovering/Resolving]
  - Coma [Recovering/Resolving]
